FAERS Safety Report 19034579 (Version 1)
Quarter: 2021Q1

REPORT INFORMATION
  Report Type: Spontaneous
  Country: FR (occurrence: FR)
  Receive Date: 20210319
  Receipt Date: 20210319
  Transmission Date: 20210420
  Serious: Yes (Hospitalization)
  Sender: FDA-Public Use
  Company Number: FR-ELI_LILLY_AND_COMPANY-FR202103005149

PATIENT
  Age: 66 Year
  Sex: Female
  Weight: 97 kg

DRUGS (1)
  1. HUMULIN R U?500 [Suspect]
     Active Substance: INSULIN HUMAN
     Indication: TYPE 2 DIABETES MELLITUS
     Dosage: 200 INTERNATIONAL UNIT, DAILY
     Route: 058
     Dates: start: 202008, end: 20201228

REACTIONS (3)
  - Hypoglycaemic coma [Recovered/Resolved]
  - Accidental overdose [Recovered/Resolved]
  - Hypoglycaemia [Recovered/Resolved]

NARRATIVE: CASE EVENT DATE: 20201226
